FAERS Safety Report 5847156-1 (Version None)
Quarter: 2008Q3

REPORT INFORMATION
  Report Type: 
  Country: None (occurrence: None)
  Receive Date: 20080815
  Receipt Date: 20080808
  Transmission Date: 20090109
  Serious: Yes (Other)
  Sender: FDA-Public Use
  Company Number: PHHY2008GB18004

PATIENT

DRUGS (1)
  1. TEGRETOL [Suspect]

REACTIONS (1)
  - CONVULSION [None]
